FAERS Safety Report 23315347 (Version 1)
Quarter: 2023Q4

REPORT INFORMATION
  Report Type: Spontaneous
  Country: US (occurrence: US)
  Receive Date: 20231219
  Receipt Date: 20231219
  Transmission Date: 20240110
  Serious: Yes (Death, Other)
  Sender: FDA-Public Use
  Company Number: US-ORG100016242-2022002920

PATIENT
  Age: 60 Year
  Sex: Female
  Weight: 60 kg

DRUGS (4)
  1. EXPAREL [Suspect]
     Active Substance: BUPIVACAINE
     Indication: Nerve block
     Dates: start: 20221115, end: 20221115
  2. EXPAREL [Suspect]
     Active Substance: BUPIVACAINE
     Indication: Nerve block
     Dates: start: 20221115, end: 20221115
  3. BUPIVACAINE [Suspect]
     Active Substance: BUPIVACAINE
     Indication: Nerve block
     Dates: start: 20221115, end: 20221115
  4. BUPIVACAINE [Suspect]
     Active Substance: BUPIVACAINE
     Indication: Nerve block
     Dates: start: 20221115, end: 20221115

REACTIONS (3)
  - Seizure [Fatal]
  - Pulseless electrical activity [Fatal]
  - Local anaesthetic systemic toxicity [Fatal]

NARRATIVE: CASE EVENT DATE: 20221115
